FAERS Safety Report 12259173 (Version 1)
Quarter: 2016Q2

REPORT INFORMATION
  Report Type: Spontaneous
  Country: US (occurrence: US)
  Receive Date: 20160412
  Receipt Date: 20160412
  Transmission Date: 20160815
  Serious: No
  Sender: FDA-Public Use
  Company Number: US-SA-2015SA067217

PATIENT
  Age: 22 Year
  Sex: Female

DRUGS (1)
  1. ALLEGRA ALLERGY [Suspect]
     Active Substance: FEXOFENADINE HYDROCHLORIDE
     Indication: MULTIPLE ALLERGIES
     Dosage: TAKEN FROM - LAST WEEK?DOSAGE FORM - GELCAP
     Route: 065

REACTIONS (6)
  - Nasal congestion [Unknown]
  - Feeling of body temperature change [Unknown]
  - Dysphonia [Unknown]
  - Malaise [Unknown]
  - Oropharyngeal pain [Unknown]
  - Lacrimation increased [Unknown]
